FAERS Safety Report 17961935 (Version 2)
Quarter: 2020Q3

REPORT INFORMATION
  Report Type: Report from Study
  Country: None (occurrence: NL)
  Receive Date: 20200629
  Receipt Date: 20200921
  Transmission Date: 20201103
  Serious: Yes (Other)
  Sender: FDA-Public Use
  Company Number: NL-ABBVIE-20K-114-3459197-00

PATIENT
  Sex: Male
  Weight: 78 kg

DRUGS (3)
  1. DUODOPA [Suspect]
     Active Substance: CARBIDOPA\LEVODOPA
     Dosage: 24 HOURS
     Route: 050
  2. MOVICOLON [Concomitant]
     Active Substance: POLYETHYLENE GLYCOL 3350\POTASSIUM CHLORIDE\SODIUM BICARBONATE\SODIUM CHLORIDE
     Indication: PRODUCT USED FOR UNKNOWN INDICATION
  3. DUODOPA [Suspect]
     Active Substance: CARBIDOPA\LEVODOPA
     Indication: PARKINSON^S DISEASE
     Dosage: 24 HOUR ADMINISTRATION
     Route: 050
     Dates: start: 20150916

REACTIONS (20)
  - Protrusion tongue [Recovered/Resolved]
  - Fibroma [Not Recovered/Not Resolved]
  - Wheelchair user [Unknown]
  - Disorientation [Not Recovered/Not Resolved]
  - Hyperkinesia [Not Recovered/Not Resolved]
  - Freezing phenomenon [Unknown]
  - Mobility decreased [Unknown]
  - Loss of personal independence in daily activities [Unknown]
  - Muscle spasms [Not Recovered/Not Resolved]
  - Constipation [Not Recovered/Not Resolved]
  - Bradykinesia [Unknown]
  - On and off phenomenon [Unknown]
  - Loss of consciousness [Recovered/Resolved]
  - Memory impairment [Unknown]
  - Muscle rigidity [Recovered/Resolved]
  - Stoma site discharge [Unknown]
  - Unresponsive to stimuli [Recovered/Resolved]
  - Dyskinesia [Not Recovered/Not Resolved]
  - Cognitive disorder [Not Recovered/Not Resolved]
  - General physical health deterioration [Not Recovered/Not Resolved]
